FAERS Safety Report 8188145-4 (Version None)
Quarter: 2012Q1

REPORT INFORMATION
  Report Type: 
  Country: None (occurrence: None)
  Receive Date: 20120306
  Receipt Date: 20100831
  Transmission Date: 20120608
  Serious: Yes (Disabling, Other)
  Sender: FDA-Public Use
  Company Number: US-BAYER-200910909NA

PATIENT
  Age: 54 Year
  Sex: Male
  Weight: 152.73 kg

DRUGS (35)
  1. MAGNEVIST [Suspect]
  2. PHOSLO [Concomitant]
     Indication: BLOOD PHOSPHORUS INCREASED
     Route: 048
  3. PLAVIX [Concomitant]
  4. LANTUS [Concomitant]
  5. FUROSEMIDE [Concomitant]
  6. EPOGEN [Concomitant]
     Indication: HAEMODIALYSIS
  7. MAGNEVIST [Suspect]
  8. VICODIN [Concomitant]
     Indication: PAIN
  9. ALLOPURINOL [Concomitant]
  10. TERAZOSIN HCL [Concomitant]
  11. VIAGRA [Concomitant]
  12. MAGNEVIST [Suspect]
  13. OPTIMARK [Suspect]
  14. RENAGEL [Concomitant]
     Route: 048
  15. ZOCOR [Concomitant]
  16. HUMALOG [Concomitant]
  17. BENICAR [Concomitant]
  18. MAGNEVIST [Suspect]
     Indication: NUCLEAR MAGNETIC RESONANCE IMAGING ABDOMINAL
  19. MAGNEVIST [Suspect]
  20. OMNISCAN [Suspect]
  21. TOPROL-XL [Concomitant]
  22. ZEMPLAR [Concomitant]
     Indication: HYPERPARATHYROIDISM SECONDARY
  23. PROHANCE [Suspect]
  24. ASPIRIN [Concomitant]
  25. VERELAN [Concomitant]
  26. MULTIHANCE [Suspect]
  27. ACETAMINOPHEN [Concomitant]
     Indication: PAIN
  28. TRICOR [Concomitant]
  29. METOPROLOL SUCCINATE [Concomitant]
  30. MAGNEVIST [Suspect]
     Indication: ANGIOGRAM
     Route: 042
     Dates: start: 20030903, end: 20030903
  31. FISH OIL [Concomitant]
  32. HUMULIN [INSULIN HUMAN] [Concomitant]
  33. LISINOPRIL [Concomitant]
  34. SENSIPAR [Concomitant]
  35. DIOVAN [Concomitant]

REACTIONS (33)
  - SKIN TIGHTNESS [None]
  - MUSCULAR WEAKNESS [None]
  - BACK PAIN [None]
  - FATIGUE [None]
  - MUSCULOSKELETAL STIFFNESS [None]
  - ANHEDONIA [None]
  - NEPHROGENIC SYSTEMIC FIBROSIS [None]
  - SKIN DISCOLOURATION [None]
  - RESTLESS LEGS SYNDROME [None]
  - GAIT DISTURBANCE [None]
  - PERONEAL NERVE PALSY [None]
  - QUALITY OF LIFE DECREASED [None]
  - GENERAL PHYSICAL HEALTH DETERIORATION [None]
  - OEDEMA PERIPHERAL [None]
  - SKIN HYPERTROPHY [None]
  - SKIN DISORDER [None]
  - OCULAR ICTERUS [None]
  - EMOTIONAL DISTRESS [None]
  - JOINT RANGE OF MOTION DECREASED [None]
  - PAIN [None]
  - AZOTAEMIA [None]
  - BALANCE DISORDER [None]
  - FEELING ABNORMAL [None]
  - PARAESTHESIA [None]
  - SCAR [None]
  - ANXIETY [None]
  - JOINT SWELLING [None]
  - SKIN INDURATION [None]
  - HYPOAESTHESIA [None]
  - COORDINATION ABNORMAL [None]
  - ARTHRALGIA [None]
  - FIBROSIS [None]
  - PRURITUS [None]
